FAERS Safety Report 7388891-6 (Version None)
Quarter: 2011Q1

REPORT INFORMATION
  Report Type: 
  Country: None (occurrence: None)
  Receive Date: 20110329
  Receipt Date: 20110329
  Transmission Date: 20110831
  Serious: Yes (Death)
  Sender: FDA-Public Use
  Company Number: None

PATIENT
  Age: 81 Year
  Sex: Male
  Weight: 119 kg

DRUGS (1)
  1. ENOXAPARIN [Suspect]
     Indication: DEEP VEIN THROMBOSIS
     Dosage: 40 MG EVERY DAY SQ
     Route: 058
     Dates: start: 20101101, end: 20110318

REACTIONS (2)
  - THROMBOCYTOPENIA [None]
  - HEPARIN-INDUCED THROMBOCYTOPENIA [None]
